FAERS Safety Report 5917037-3 (Version None)
Quarter: 2008Q4

REPORT INFORMATION
  Report Type: 
  Country: None (occurrence: None)
  Receive Date: 20081009
  Receipt Date: 20081009
  Transmission Date: 20090506
  Serious: Yes (Life-Threatening, Hospitalization)
  Sender: FDA-Public Use
  Company Number: None

PATIENT
  Age: 67 Year
  Sex: Female
  Weight: 63.5036 kg

DRUGS (2)
  1. NUBAIN [Suspect]
  2. TORADOL [Suspect]

REACTIONS (6)
  - ABNORMAL BEHAVIOUR [None]
  - AGGRESSION [None]
  - HAEMORRHAGE [None]
  - INTENTIONAL SELF-INJURY [None]
  - SKIN INJURY [None]
  - WITHDRAWAL SYNDROME [None]
